FAERS Safety Report 21498067 (Version 1)
Quarter: 2022Q4

REPORT INFORMATION
  Report Type: Spontaneous
  Country: CN (occurrence: CN)
  Receive Date: 20221024
  Receipt Date: 20221024
  Transmission Date: 20230112
  Serious: Yes (Hospitalization, Other)
  Sender: FDA-Public Use
  Company Number: None

PATIENT
  Sex: Female
  Weight: 65 kg

DRUGS (3)
  1. CYCLOPHOSPHAMIDE [Suspect]
     Active Substance: CYCLOPHOSPHAMIDE
     Indication: Breast cancer
     Dosage: 1 G, INJECTION, QD (TEMPORARY ONCE), DILUTED WITH 0.9% SODIUM CHLORIDE (250 ML)
     Route: 041
     Dates: start: 20220922, end: 20220922
  2. CYCLOPHOSPHAMIDE [Suspect]
     Active Substance: CYCLOPHOSPHAMIDE
     Indication: Neoplasm
  3. SODIUM CHLORIDE [Suspect]
     Active Substance: SODIUM CHLORIDE
     Indication: Medication dilution
     Dosage: 250 ML, QD(TEMPORARY ONCE), DILUTED WITH CYCLOPHOSPHAMIDE (1 G)
     Route: 041
     Dates: start: 20220922, end: 20220922

REACTIONS (2)
  - Myelosuppression [Recovered/Resolved]
  - Mental disorder [Unknown]

NARRATIVE: CASE EVENT DATE: 20220101
